FAERS Safety Report 20127490 (Version 3)
Quarter: 2021Q4

REPORT INFORMATION
  Report Type: Spontaneous
  Country: NL (occurrence: NL)
  Receive Date: 20211129
  Receipt Date: 20211217
  Transmission Date: 20220303
  Serious: Yes (Other)
  Sender: FDA-Public Use
  Company Number: NL-ASTELLAS-2021US035659

PATIENT
  Age: 74 Year
  Sex: Male

DRUGS (3)
  1. TACROLIMUS [Suspect]
     Active Substance: TACROLIMUS
     Indication: Renal transplant
     Dosage: UNK UNK, UNKNOWN FREQ.
     Route: 065
  2. MYCOPHENOLATE MOFETIL [Suspect]
     Active Substance: MYCOPHENOLATE MOFETIL
     Indication: Renal transplant
     Dosage: UNK UNK, UNKNOWN FREQ.
     Route: 065
  3. TACROLIMUS [Suspect]
     Active Substance: TACROLIMUS
     Indication: Renal transplant
     Dosage: 1 MILLIGRAM, BID (0.5 DAY)
     Route: 048
     Dates: start: 201811

REACTIONS (3)
  - Diffuse large B-cell lymphoma stage IV [Unknown]
  - Central nervous system lymphoma [Unknown]
  - Post transplant lymphoproliferative disorder [Unknown]

NARRATIVE: CASE EVENT DATE: 20210422
